FAERS Safety Report 6270198-1 (Version None)
Quarter: 2009Q3

REPORT INFORMATION
  Report Type: 
  Country: None (occurrence: None)
  Receive Date: 20090716
  Receipt Date: 20090707
  Transmission Date: 20100115
  Serious: Yes (Hospitalization)
  Sender: FDA-Public Use
  Company Number: US-ELI_LILLY_AND_COMPANY-US200907001272

PATIENT
  Sex: Female
  Weight: 115.19 kg

DRUGS (11)
  1. BYETTA [Suspect]
     Indication: TYPE 2 DIABETES MELLITUS
     Dosage: 5 UG, 2/D
     Route: 058
     Dates: start: 20080101, end: 20080301
  2. BYETTA [Suspect]
     Dosage: 10 UG, 2/D
     Route: 058
     Dates: start: 20080301, end: 20081101
  3. BYETTA [Suspect]
     Dosage: 10 UG, 2/D
     Route: 058
     Dates: start: 20081201, end: 20081201
  4. BYETTA [Suspect]
     Dosage: 5 UG, 2/D
     Route: 058
     Dates: start: 20081201, end: 20090201
  5. BYETTA [Suspect]
     Dosage: 10 UG, 2/D
     Route: 058
     Dates: start: 20090201
  6. METFORMIN HCL [Concomitant]
     Indication: TYPE 2 DIABETES MELLITUS
     Dosage: 500 MG, 3/D
  7. SYNTHROID [Concomitant]
     Indication: HYPOTHYROIDISM
     Dosage: 100 UG, DAILY (1/D)
  8. INDERAL [Concomitant]
     Indication: HYPERTENSION
     Dosage: 20 MG, 2/D
  9. CATAPRES /00171102/ [Concomitant]
     Indication: HYPERTENSION
     Dosage: 0.2 MG, 2/D
  10. LOTENSIN [Concomitant]
     Indication: HYPERTENSION
     Dosage: 10 MG, 2/D
  11. AMBIEN [Concomitant]
     Indication: INSOMNIA
     Dosage: 10 MG, AS NEEDED

REACTIONS (12)
  - ABNORMAL BEHAVIOUR [None]
  - BENIGN OVARIAN TUMOUR [None]
  - BLOOD GLUCOSE INCREASED [None]
  - DECREASED APPETITE [None]
  - DRUG DOSE OMISSION [None]
  - GASTROENTERITIS [None]
  - GLAUCOMA [None]
  - INFECTION [None]
  - NAUSEA [None]
  - POSTOPERATIVE WOUND COMPLICATION [None]
  - VOMITING [None]
  - WEIGHT DECREASED [None]
